FAERS Safety Report 16043902 (Version 4)
Quarter: 2019Q2

REPORT INFORMATION
  Report Type: Spontaneous
  Country: US (occurrence: US)
  Receive Date: 20190306
  Receipt Date: 20190416
  Transmission Date: 20190711
  Serious: No
  Sender: FDA-Public Use
  Company Number: US-SA-2019SA056786

PATIENT
  Age: 48 Year
  Sex: Male

DRUGS (1)
  1. APIDRA SOLOSTAR [Suspect]
     Active Substance: INSULIN GLULISINE
     Indication: TYPE 1 DIABETES MELLITUS
     Dosage: 6-20 UNITS WITH EVERY MEAL
     Route: 065

REACTIONS (2)
  - Device operational issue [Unknown]
  - Blood glucose increased [Unknown]
